FAERS Safety Report 12130188 (Version 1)
Quarter: 2016Q1

REPORT INFORMATION
  Report Type: Spontaneous
  Country: US (occurrence: None)
  Receive Date: 20160229
  Receipt Date: 20160229
  Transmission Date: 20160526
  Serious: No
  Sender: FDA-Public Use
  Company Number: None

PATIENT
  Age: 59 Year
  Sex: Female

DRUGS (4)
  1. LOSARTAN. [Concomitant]
     Active Substance: LOSARTAN
  2. DETROL [Concomitant]
     Active Substance: TOLTERODINE TARTRATE
  3. SPRYCEL [Suspect]
     Active Substance: DASATINIB
     Indication: CHRONIC LYMPHOCYTIC LEUKAEMIA
     Route: 048
     Dates: start: 20120612
  4. TERBINAFINE. [Concomitant]
     Active Substance: TERBINAFINE

REACTIONS (2)
  - Muscle spasms [None]
  - Drug dose omission [None]

NARRATIVE: CASE EVENT DATE: 201601
